FAERS Safety Report 8058567-0 (Version None)
Quarter: 2012Q1

REPORT INFORMATION
  Report Type: 
  Country: None (occurrence: None)
  Receive Date: 20120120
  Receipt Date: 20120118
  Transmission Date: 20120608
  Serious: Yes (Hospitalization, Other)
  Sender: FDA-Public Use
  Company Number: US-PFIZER INC-2012015793

PATIENT
  Sex: Female
  Weight: 79.8 kg

DRUGS (6)
  1. CHANTIX [Suspect]
     Dosage: UNK
     Route: 048
     Dates: start: 20110101, end: 20110101
  2. ZYPREXA [Concomitant]
     Indication: PSYCHOTIC DISORDER
     Dosage: 15 MG, DAILY
     Route: 048
  3. CHANTIX [Suspect]
     Indication: SMOKING CESSATION THERAPY
     Dosage: UNK
     Route: 048
  4. CHANTIX [Suspect]
     Dosage: 1 MG, UNK
     Route: 048
     Dates: start: 20120116
  5. SEROQUEL [Concomitant]
     Dosage: 400 MG, DAILY AT BED TIME
     Route: 048
  6. LAMICTAL [Concomitant]
     Indication: AFFECTIVE DISORDER
     Dosage: 100 MG, 2X/DAY
     Route: 048

REACTIONS (4)
  - DRUG INEFFECTIVE [None]
  - DIABETES MELLITUS [None]
  - NIGHTMARE [None]
  - SCHIZOAFFECTIVE DISORDER [None]
